FAERS Safety Report 8546278-4 (Version None)
Quarter: 2012Q3

REPORT INFORMATION
  Report Type: 
  Country: None (occurrence: None)
  Receive Date: 20120727
  Receipt Date: 20120718
  Transmission Date: 20120928
  Serious: Yes (Other)
  Sender: FDA-Public Use
  Company Number: US-ASTRAZENECA-2012SE50950

PATIENT
  Age: 62 Year
  Sex: Male

DRUGS (5)
  1. OMEPRAZOLE [Suspect]
     Route: 048
  2. OMEPRAZOLE [Suspect]
     Route: 048
  3. CLARITHROMYCIN [Suspect]
  4. NEXIUM [Suspect]
     Route: 048
  5. AMOXICILLIN [Suspect]

REACTIONS (10)
  - HELICOBACTER INFECTION [None]
  - DRUG DOSE OMISSION [None]
  - BARRETT'S OESOPHAGUS [None]
  - ABDOMINAL PAIN [None]
  - GASTRIC CANCER STAGE III [None]
  - GASTRITIS [None]
  - GASTROOESOPHAGEAL REFLUX DISEASE [None]
  - NAUSEA [None]
  - OFF LABEL USE [None]
  - DRUG INEFFECTIVE [None]
